FAERS Safety Report 9034817 (Version 1)
Quarter: 2013Q1

REPORT INFORMATION
  Report Type: Spontaneous
  Country: US (occurrence: None)
  Receive Date: 20130116
  Receipt Date: 20130116
  Transmission Date: 20140127
  Serious: No
  Sender: FDA-Public Use
  Company Number: None

PATIENT
  Sex: Female
  Weight: 60.7 kg

DRUGS (2)
  1. CARBOPLATIN [Suspect]
     Dates: end: 20130107
  2. PACLITAXEL (TAXOL) [Suspect]
     Dates: end: 20130107

REACTIONS (3)
  - Hypoglycaemia [None]
  - Pyrexia [None]
  - Lethargy [None]
